FAERS Safety Report 15737647 (Version 4)
Quarter: 2019Q1

REPORT INFORMATION
  Report Type: Spontaneous
  Country: US (occurrence: US)
  Receive Date: 20181219
  Receipt Date: 20190307
  Transmission Date: 20190417
  Serious: Yes (Hospitalization)
  Sender: FDA-Public Use
  Company Number: PHEH2018US052402

PATIENT
  Sex: Female

DRUGS (4)
  1. KISQALI [Suspect]
     Active Substance: RIBOCICLIB
     Dosage: 200 MG, TID (THREE TIMES A DAY)
     Route: 048
  2. ABEMACICLIB [Suspect]
     Active Substance: ABEMACICLIB
     Indication: BREAST CANCER FEMALE
     Dosage: 150 MG, BID (TWICE A DAY)
     Route: 048
  3. KISQALI [Suspect]
     Active Substance: RIBOCICLIB
     Dosage: 200 MG, QD
     Route: 048
  4. KISQALI [Suspect]
     Active Substance: RIBOCICLIB
     Indication: BREAST CANCER FEMALE
     Dosage: 600 MG, QW3 (EVERY 21 DAYS)
     Route: 048

REACTIONS (7)
  - Diarrhoea [Unknown]
  - White blood cell count decreased [Unknown]
  - Renal disorder [Unknown]
  - Decreased immune responsiveness [Unknown]
  - Vomiting [Unknown]
  - Dehydration [Unknown]
  - White blood cell count increased [Unknown]
